FAERS Safety Report 9100844 (Version 1)
Quarter: 2013Q1

REPORT INFORMATION
  Report Type: Spontaneous
  Country: US (occurrence: US)
  Receive Date: 20130214
  Receipt Date: 20130214
  Transmission Date: 20140127
  Serious: Yes (Other)
  Sender: FDA-Public Use
  Company Number: US-TEVA-385790USA

PATIENT
  Age: 28 Year
  Sex: Female
  Weight: 70.37 kg

DRUGS (1)
  1. PARAGARD 380A [Suspect]
     Indication: CONTRACEPTION
     Route: 015
     Dates: start: 20121210, end: 20130115

REACTIONS (6)
  - Device dislocation [Recovered/Resolved]
  - Urinary tract infection [Recovered/Resolved]
  - Discomfort [Recovered/Resolved]
  - Complication of device insertion [Recovered/Resolved]
  - Metrorrhagia [Recovered/Resolved]
  - Infection [Unknown]
